FAERS Safety Report 6752327-6 (Version None)
Quarter: 2010Q2

REPORT INFORMATION
  Report Type: 
  Country: None (occurrence: None)
  Receive Date: 20100602
  Receipt Date: 20100525
  Transmission Date: 20101027
  Serious: Yes (Hospitalization)
  Sender: FDA-Public Use
  Company Number: GXKR2010GB05889

PATIENT
  Sex: Female

DRUGS (2)
  1. SIMVASTATIN (NGX) [Suspect]
     Route: 065
  2. MICONAZOLE [Interacting]
     Route: 048

REACTIONS (2)
  - DRUG INTERACTION [None]
  - OEDEMA MOUTH [None]
